FAERS Safety Report 9735799 (Version 1)
Quarter: 2013Q4

REPORT INFORMATION
  Report Type: Spontaneous
  Country: US (occurrence: US)
  Receive Date: 20131206
  Receipt Date: 20131206
  Transmission Date: 20140711
  Serious: No
  Sender: FDA-Public Use
  Company Number: US-GILEAD-2009-0023098

PATIENT
  Sex: Male
  Weight: 71.67 kg

DRUGS (11)
  1. LETAIRIS [Suspect]
     Indication: PULMONARY ARTERIAL HYPERTENSION
     Route: 048
     Dates: start: 20090612
  2. DIOVAN [Concomitant]
  3. CARVEDILOL [Concomitant]
  4. DILTIAZEM [Concomitant]
  5. FUROSEMIDE [Concomitant]
  6. METHOTREXATE [Concomitant]
  7. HYDROXYCHLORQUINE [Concomitant]
  8. FEXOFENADINE HCL [Concomitant]
  9. PREDNISONE-5 [Concomitant]
  10. OMEPRAZOLE DR [Concomitant]
  11. FOLIC ACID [Concomitant]

REACTIONS (1)
  - Chest discomfort [Unknown]
